FAERS Safety Report 18480204 (Version 2)
Quarter: 2020Q4

REPORT INFORMATION
  Report Type: Spontaneous
  Country: CA (occurrence: CA)
  Receive Date: 20201109
  Receipt Date: 20201217
  Transmission Date: 20210114
  Serious: Yes (Hospitalization, Other)
  Sender: FDA-Public Use
  Company Number: CA-GLAXOSMITHKLINE-US2020GSK221646

PATIENT
  Sex: Male

DRUGS (2)
  1. AVANDAMET [Suspect]
     Active Substance: METFORMIN HYDROCHLORIDE\ROSIGLITAZONE MALEATE
     Indication: TYPE 2 DIABETES MELLITUS
     Dosage: UNK UNK, QD
     Route: 048
  2. AVANDIA [Suspect]
     Active Substance: ROSIGLITAZONE MALEATE
     Indication: DIABETES MELLITUS
     Dosage: 4 MG, QD
     Route: 048
     Dates: start: 20040424, end: 20100221

REACTIONS (12)
  - Catheterisation cardiac [Unknown]
  - Cardiac disorder [Unknown]
  - Angina pectoris [Unknown]
  - Coronary artery disease [Unknown]
  - Cardiac failure congestive [Unknown]
  - Myocardial infarction [Unknown]
  - Angioplasty [Unknown]
  - Acute myocardial infarction [Unknown]
  - Cardiac arrest [Unknown]
  - Myocardial ischaemia [Unknown]
  - Coronary arterial stent insertion [Unknown]
  - Coronary artery bypass [Unknown]
